FAERS Safety Report 17021635 (Version 2)
Quarter: 2020Q1

REPORT INFORMATION
  Report Type: Report from Study
  Country: GB (occurrence: GB)
  Receive Date: 20191112
  Receipt Date: 20200320
  Transmission Date: 20200409
  Serious: Yes (Other)
  Sender: FDA-Public Use
  Company Number: NVSC2019GB031617

PATIENT
  Sex: Female

DRUGS (1)
  1. COSENTYX [Suspect]
     Active Substance: SECUKINUMAB
     Indication: PSORIATIC ARTHROPATHY
     Dosage: 300 MG, QW (ON WEEKS 0, 1, 2, 3 AND 4 FOLLOWED BY QMO THEREAFTER AS DIRECTED)
     Route: 058
     Dates: start: 20190727

REACTIONS (6)
  - Dementia [Unknown]
  - Cardiac arrest [Unknown]
  - Cardiac disorder [Unknown]
  - Influenza like illness [Unknown]
  - Psoriatic arthropathy [Unknown]
  - Pain [Unknown]
